FAERS Safety Report 25092191 (Version 1)
Quarter: 2025Q1

REPORT INFORMATION
  Report Type: Spontaneous
  Country: FI (occurrence: FI)
  Receive Date: 20250319
  Receipt Date: 20250319
  Transmission Date: 20250408
  Serious: Yes (Other)
  Sender: CELLTRION
  Company Number: FI-CELLTRION INC.-2025FI008143

PATIENT

DRUGS (1)
  1. YUFLYMA [Suspect]
     Active Substance: ADALIMUMAB-AATY
     Indication: Product used for unknown indication

REACTIONS (5)
  - Oral pain [Unknown]
  - General physical health deterioration [Unknown]
  - Cutaneous symptom [Unknown]
  - Weight decreased [Unknown]
  - Insomnia [Unknown]
